FAERS Safety Report 6172803-7 (Version None)
Quarter: 2009Q2

REPORT INFORMATION
  Report Type: 
  Country: None (occurrence: None)
  Receive Date: 20090430
  Receipt Date: 20090420
  Transmission Date: 20091009
  Serious: Yes (Life-Threatening, Hospitalization, Disabling)
  Sender: FDA-Public Use
  Company Number: US-BRISTOL-MYERS SQUIBB COMPANY-14605497

PATIENT
  Age: 81 Year
  Sex: Male

DRUGS (17)
  1. CETUXIMAB [Suspect]
     Indication: PROSTATE CANCER
     Dosage: CETUXIMAB(CHIMERIC ANTI-EGFR MAB) 21.9048 MG
     Route: 042
     Dates: start: 20080611, end: 20081014
  2. MITOXANTRONE [Suspect]
     Indication: PROSTATE CANCER
     Dosage: 0.7619 MG
     Route: 042
     Dates: start: 20080611, end: 20081008
  3. AMIODARONE [Concomitant]
     Route: 048
  4. ATENOLOL [Concomitant]
     Route: 048
  5. COMPAZINE [Concomitant]
     Dosage: TOTAL 40MG.
     Route: 048
  6. VICODIN [Concomitant]
     Indication: PAIN
     Dosage: 1-2 Q4-6HRS PAIN.
     Route: 048
  7. MARINOL [Concomitant]
     Route: 048
  8. NITROGLYCERIN [Concomitant]
     Route: 060
  9. SENOKOT [Concomitant]
     Dosage: 1DF=8.6-50MG.
     Route: 048
  10. SLOW-MAG [Concomitant]
     Route: 048
  11. ZOLOFT [Concomitant]
     Route: 048
  12. PREDNISONE [Concomitant]
     Route: 048
  13. LIPITOR [Concomitant]
     Route: 048
  14. ASPIRIN [Concomitant]
     Route: 048
  15. PRILOSEC [Concomitant]
     Route: 048
  16. HUMALOG [Concomitant]
     Dosage: HS(HALF STRENGTH).
     Route: 058
  17. DIOVAN [Concomitant]
     Route: 048

REACTIONS (3)
  - ASTHENIA [None]
  - PELVIC PAIN [None]
  - SYNCOPE [None]
